FAERS Safety Report 6966364-X (Version None)
Quarter: 2010Q3

REPORT INFORMATION
  Report Type: 
  Country: None (occurrence: None)
  Receive Date: 20100903
  Receipt Date: 20100830
  Transmission Date: 20110219
  Serious: Yes (Death, Other)
  Sender: FDA-Public Use
  Company Number: PHHY2010JP57610

PATIENT
  Sex: Male

DRUGS (4)
  1. CO-DIOVAN T32564+FCTAB [Suspect]
     Indication: HYPERTENSION
     Dosage: 1 DF, QD
     Route: 048
     Dates: start: 20090401, end: 20090714
  2. CINALONG [Concomitant]
     Indication: HYPERTENSION
     Dosage: 10 MG, DAILY
     Route: 048
     Dates: start: 19961016, end: 20090714
  3. MICARDIS [Concomitant]
     Dosage: 40 MG, DAILY
  4. ZETIA [Concomitant]
     Dosage: 10 MG, UNK
     Dates: start: 20090411, end: 20090714

REACTIONS (2)
  - LIVER FUNCTION TEST ABNORMAL [None]
  - PANCREATITIS ACUTE [None]
